FAERS Safety Report 15170657 (Version 1)
Quarter: 2018Q3

REPORT INFORMATION
  Report Type: Spontaneous
  Country: US (occurrence: US)
  Receive Date: 20180622
  Receipt Date: 20180622
  Transmission Date: 20181010
  Serious: Yes (Death)
  Sender: FDA-Public Use
  Company Number: None

PATIENT
  Age: 62 Year
  Sex: Male

DRUGS (20)
  1. FLONASE [Concomitant]
     Active Substance: FLUTICASONE PROPIONATE
  2. LISINOPRIL. [Concomitant]
     Active Substance: LISINOPRIL
  3. SENNA [Concomitant]
     Active Substance: SENNA LEAF\SENNOSIDES\SENNOSIDES A AND B
  4. LASIX [Concomitant]
     Active Substance: FUROSEMIDE
  5. CLARITIN [Concomitant]
     Active Substance: LORATADINE
  6. OXYCODONE AND ACETAMINOPHEN [Concomitant]
     Active Substance: ACETAMINOPHEN\OXYCODONE HYDROCHLORIDE
  7. FLOMAX [Concomitant]
     Active Substance: TAMSULOSIN HYDROCHLORIDE
  8. MULTIVITAMIN [Concomitant]
     Active Substance: VITAMINS
  9. NEURONTIN [Concomitant]
     Active Substance: GABAPENTIN
  10. PLAVIX [Concomitant]
     Active Substance: CLOPIDOGREL BISULFATE
  11. LUPRON [Suspect]
     Active Substance: LEUPROLIDE ACETATE
     Indication: PROSTATE CANCER
     Dosage: ?          OTHER FREQUENCY:Q3M;?
     Route: 030
     Dates: start: 20161107, end: 20180402
  12. LUPRON [Suspect]
     Active Substance: LEUPROLIDE ACETATE
     Indication: BONE CANCER METASTATIC
     Dosage: ?          OTHER FREQUENCY:Q3M;?
     Route: 030
     Dates: start: 20161107, end: 20180402
  13. ASPIRIN. [Concomitant]
     Active Substance: ASPIRIN
  14. BACLOFEN. [Concomitant]
     Active Substance: BACLOFEN
  15. LANTUS [Concomitant]
     Active Substance: INSULIN GLARGINE
  16. PEPCID [Concomitant]
     Active Substance: FAMOTIDINE
  17. VITAMIN D [Concomitant]
     Active Substance: CHOLECALCIFEROL
  18. ATORVASTATIN [Concomitant]
     Active Substance: ATORVASTATIN
  19. MS CONTIN [Concomitant]
     Active Substance: MORPHINE SULFATE
  20. TOPROL XL [Concomitant]
     Active Substance: METOPROLOL SUCCINATE

REACTIONS (1)
  - Death [None]

NARRATIVE: CASE EVENT DATE: 20180507
